FAERS Safety Report 7328628-X (Version None)
Quarter: 2011Q1

REPORT INFORMATION
  Report Type: 
  Country: None (occurrence: None)
  Receive Date: 20110225
  Receipt Date: 20110225
  Transmission Date: 20110831
  Serious: Yes (Other)
  Sender: FDA-Public Use
  Company Number: None

PATIENT
  Age: 25 Year
  Sex: Male
  Weight: 81.6475 kg

DRUGS (1)
  1. ATENOLOL [Suspect]
     Indication: TREMOR
     Dosage: 50 MG DAILY PO
     Route: 048
     Dates: start: 20090101, end: 20100101

REACTIONS (2)
  - TREMOR [None]
  - SCHIZOPHRENIA [None]
